FAERS Safety Report 6705824-3 (Version None)
Quarter: 2010Q2

REPORT INFORMATION
  Report Type: 
  Country: None (occurrence: None)
  Receive Date: 20100428
  Receipt Date: 20100413
  Transmission Date: 20101027
  Serious: Yes (Other)
  Sender: FDA-Public Use
  Company Number: AUR-APL-2010-01083

PATIENT
  Age: 46 Year
  Sex: Male

DRUGS (1)
  1. FLUCONAZOLE [Suspect]
     Indication: COCCIDIOIDOMYCOSIS
     Dosage: 400-800 MG, DAILY, ORAL
     Route: 048

REACTIONS (4)
  - CHOROIDITIS [None]
  - HEADACHE [None]
  - VASCULITIS CEREBRAL [None]
  - VITRITIS [None]
